FAERS Safety Report 22001300 (Version 2)
Quarter: 2023Q2

REPORT INFORMATION
  Report Type: Spontaneous
  Country: US (occurrence: US)
  Receive Date: 20230216
  Receipt Date: 20230517
  Transmission Date: 20230722
  Serious: Yes (Death, Hospitalization, Other)
  Sender: FDA-Public Use
  Company Number: US-BRISTOL-MYERS SQUIBB COMPANY-2023-023038

PATIENT
  Age: 36 Year
  Sex: Female

DRUGS (2)
  1. OPDIVO [Suspect]
     Active Substance: NIVOLUMAB
     Indication: Breast cancer
     Dosage: DOSE : 75 MG YERVOY, 240 MG OPDIVO;     FREQ : YERVOY EVERY 6 WEEKS?OPDIVO EVERY 2 WEEKS
     Route: 042
  2. YERVOY [Suspect]
     Active Substance: IPILIMUMAB
     Indication: Breast cancer
     Dosage: DOSE : 75 MG YERVOY, 240 MG OPDIVO;     FREQ : YERVOY EVERY 6 WEEKS?OPDIVO EVERY 2 WEEKS
     Route: 042

REACTIONS (2)
  - Death [Fatal]
  - Off label use [Unknown]

NARRATIVE: CASE EVENT DATE: 20221102
